FAERS Safety Report 23972115 (Version 1)
Quarter: 2024Q2

REPORT INFORMATION
  Report Type: Spontaneous
  Country: US (occurrence: None)
  Receive Date: 20240612
  Receipt Date: 20240612
  Transmission Date: 20240716
  Serious: Yes (Other)
  Sender: FDA-Public Use
  Company Number: None

PATIENT
  Age: 65 Year
  Sex: Female
  Weight: 68.85 kg

DRUGS (3)
  1. TYRVAYA [Suspect]
     Active Substance: VARENICLINE TARTRATE
     Indication: Dry eye
     Dates: start: 20231215, end: 20240607
  2. VIT B-12 [Concomitant]
  3. VITAMIN B-3 [Concomitant]

REACTIONS (5)
  - Oropharyngeal pain [None]
  - Ear discomfort [None]
  - Cough [None]
  - Paranasal sinus discomfort [None]
  - Infection [None]

NARRATIVE: CASE EVENT DATE: 20240607
